FAERS Safety Report 6304268-6 (Version None)
Quarter: 2009Q3

REPORT INFORMATION
  Report Type: 
  Country: None (occurrence: None)
  Receive Date: 20090806
  Receipt Date: 20090723
  Transmission Date: 20100115
  Serious: Yes (Hospitalization)
  Sender: FDA-Public Use
  Company Number: 1000007858

PATIENT
  Age: 40 Year
  Sex: Female

DRUGS (5)
  1. ESCITALOPRAM [Suspect]
     Dosage: 20 MG (20 MG, 1 IN 1 D), ORAL
     Route: 048
     Dates: start: 20090701, end: 20090708
  2. TERCIAN (CAPSULES) [Suspect]
     Dosage: 50 MG (25 MG, 2 IN 1 D), ORAL
     Route: 048
     Dates: start: 20090701, end: 20090708
  3. STILNOX (TABLETS) [Suspect]
     Dosage: 5 MG (5 MG, 1 IN 1 D), ORAL
     Route: 048
     Dates: start: 20090701, end: 20090708
  4. PROPOXYPHENE HCL AND ACETAMINOPHEN [Suspect]
     Dosage: 6 DOSAGE FORMS (6 DOSAGE FORMS, 1 IN 1 D), ORAL
     Route: 048
     Dates: start: 20090701, end: 20090708
  5. DUPHALAC [Suspect]
     Dosage: 6 DOSAGE FORMS (6 DOSAGE FORMS, 1 IN 1 D), ORAL
     Route: 048
     Dates: start: 20090701, end: 20090708

REACTIONS (4)
  - ATRIOVENTRICULAR BLOCK SECOND DEGREE [None]
  - ELECTROCARDIOGRAM QT PROLONGED [None]
  - LOSS OF CONSCIOUSNESS [None]
  - MALAISE [None]
